FAERS Safety Report 8968898 (Version 6)
Quarter: 2013Q4

REPORT INFORMATION
  Report Type: Spontaneous
  Country: US (occurrence: US)
  Receive Date: 20121218
  Receipt Date: 20131126
  Transmission Date: 20140711
  Serious: Yes (Hospitalization)
  Sender: FDA-Public Use
  Company Number: US-BIOGENIDEC-2012BI059999

PATIENT
  Age: 42 Year
  Sex: Female

DRUGS (6)
  1. TYSABRI [Suspect]
     Indication: MULTIPLE SCLEROSIS
     Route: 042
     Dates: start: 20110401, end: 201111
  2. HYDROCORTISONE [Concomitant]
     Indication: ADRENAL INSUFFICIENCY
     Route: 048
     Dates: start: 2008
  3. VALIUM [Concomitant]
     Indication: DYSPHAGIA
     Dates: start: 2010
  4. SALT TABLET [Concomitant]
     Indication: INAPPROPRIATE ANTIDIURETIC HORMONE SECRETION
     Dates: start: 2010
  5. LYRICA [Concomitant]
     Indication: DYSPHAGIA
     Dates: start: 2010
  6. DILAUDID [Concomitant]
     Indication: OROPHARYNGEAL PAIN
     Dates: start: 2010

REACTIONS (8)
  - Pneumonia mycoplasmal [Recovered/Resolved]
  - Adrenal insufficiency [Unknown]
  - Hallucination, auditory [Recovered/Resolved]
  - Anoxia [Recovered/Resolved]
  - Tendonitis [Not Recovered/Not Resolved]
  - Weight decreased [Unknown]
  - Multiple sclerosis relapse [Unknown]
  - Oesophageal disorder [Unknown]
